FAERS Safety Report 19141513 (Version 1)
Quarter: 2021Q2

REPORT INFORMATION
  Report Type: Spontaneous
  Country: US (occurrence: US)
  Receive Date: 20210415
  Receipt Date: 20210415
  Transmission Date: 20210717
  Serious: No
  Sender: FDA-Public Use
  Company Number: US-TEVA-2021-US-1891778

PATIENT
  Age: 51 Year
  Sex: Female

DRUGS (11)
  1. CLIMARA [Concomitant]
     Active Substance: ESTRADIOL
  2. ATENOLOL?CHLORTHALIDONE [Concomitant]
     Active Substance: ATENOLOL\CHLORTHALIDONE
  3. SUMATRIPTAN. [Concomitant]
     Active Substance: SUMATRIPTAN
  4. MONTELUKAST [Concomitant]
     Active Substance: MONTELUKAST SODIUM
  5. MOTRIN [Concomitant]
     Active Substance: IBUPROFEN
     Dosage: AS NEEDED
  6. AJOVY [Suspect]
     Active Substance: FREMANEZUMAB-VFRM
  7. ALBUTEROL. [Concomitant]
     Active Substance: ALBUTEROL
  8. NORCO [Concomitant]
     Active Substance: ACETAMINOPHEN\HYDROCODONE BITARTRATE
     Dosage: AS NEEDED
  9. COLACE [Concomitant]
     Active Substance: DOCUSATE SODIUM
     Dosage: AS NEEDED
  10. AJOVY [Suspect]
     Active Substance: FREMANEZUMAB-VFRM
     Indication: MIGRAINE
     Route: 065
     Dates: start: 202102
  11. BUPROPION. [Concomitant]
     Active Substance: BUPROPION

REACTIONS (1)
  - Rash erythematous [Unknown]

NARRATIVE: CASE EVENT DATE: 202103
